FAERS Safety Report 4552767-X (Version None)
Quarter: 2005Q1

REPORT INFORMATION
  Report Type: 
  Country: None (occurrence: None)
  Receive Date: 20050112
  Receipt Date: 20050112
  Transmission Date: 20050727
  Serious: Yes (Other)
  Sender: FDA-Public Use
  Company Number: None

PATIENT
  Age: 52 Year
  Sex: Female

DRUGS (1)
  1. ELIDEL [Suspect]

REACTIONS (4)
  - DERMATITIS EXFOLIATIVE [None]
  - ERYTHEMA [None]
  - EYE SWELLING [None]
  - RASH [None]
